FAERS Safety Report 10056916 (Version 1)
Quarter: 2014Q2

REPORT INFORMATION
  Report Type: Spontaneous
  Country: US (occurrence: US)
  Receive Date: 20140403
  Receipt Date: 20140403
  Transmission Date: 20141212
  Serious: No
  Sender: FDA-Public Use
  Company Number: US-BAYER-2014-047369

PATIENT
  Age: 73 Year
  Sex: Female
  Weight: 50 kg

DRUGS (5)
  1. CIPRO [Suspect]
     Indication: MYCOBACTERIUM AVIUM COMPLEX INFECTION
  2. RIFAMPIN [Concomitant]
     Indication: MYCOBACTERIUM AVIUM COMPLEX INFECTION
     Dosage: 300 MG, BID
     Route: 048
     Dates: start: 201208, end: 20130830
  3. AZITHROMYCIN [Concomitant]
     Indication: MYCOBACTERIUM AVIUM COMPLEX INFECTION
     Dosage: 250 MG, QD
     Route: 048
     Dates: start: 201208, end: 20130830
  4. XANAX [Concomitant]
     Indication: ANXIETY
     Dosage: 0.25 MG, PRN
  5. TRETINOIN [Concomitant]
     Indication: SKIN DISORDER
     Dosage: 0.1 %, HS

REACTIONS (1)
  - Drug ineffective [None]
